FAERS Safety Report 4745436-4 (Version None)
Quarter: 2005Q3

REPORT INFORMATION
  Report Type: 
  Country: None (occurrence: None)
  Receive Date: 20050812
  Receipt Date: 20040929
  Transmission Date: 20060218
  Serious: Yes (Hospitalization)
  Sender: FDA-Public Use
  Company Number: PHEH2004US10504

PATIENT
  Sex: Female

DRUGS (1)
  1. VISUDYNE [Suspect]
     Indication: MACULAR DEGENERATION
     Dosage: 2 MG/ML ONCE IV
     Route: 042
     Dates: start: 20040818, end: 20040818

REACTIONS (4)
  - CLOSTRIDIUM COLITIS [None]
  - COUGH [None]
  - DIARRHOEA [None]
  - PNEUMONIA [None]
